FAERS Safety Report 5300407-4 (Version None)
Quarter: 2007Q2

REPORT INFORMATION
  Report Type: 
  Country: None (occurrence: None)
  Receive Date: 20070418
  Receipt Date: 20061128
  Transmission Date: 20071010
  Serious: Yes (Hospitalization)
  Sender: FDA-Public Use
  Company Number: US-BAYER-200511115BWH

PATIENT
  Age: 78 Year
  Sex: Male
  Weight: 72 kg

DRUGS (16)
  1. PLACEBO TO SORAFENIB [Suspect]
     Indication: MALIGNANT MELANOMA STAGE III
     Dosage: TOTAL DAILY DOSE: 800 MG  UNIT DOSE: 200 MG
     Route: 048
     Dates: start: 20050511, end: 20050602
  2. DACARBAZINE [Suspect]
     Dosage: UNIT DOSE: 1000 MG/M2
     Route: 042
     Dates: start: 20050511, end: 20050511
  3. TOPROL-XL [Concomitant]
     Indication: HYPERTENSION
     Route: 048
  4. PROCARDIA [Concomitant]
     Indication: ANGINA PECTORIS
     Route: 048
  5. NAPROSYN [Concomitant]
     Indication: PAIN
     Route: 048
     Dates: start: 19960101
  6. PRILOSEC [Concomitant]
     Indication: GASTROOESOPHAGEAL REFLUX DISEASE
     Route: 048
     Dates: start: 19960101
  7. BENADRYL [Concomitant]
     Indication: SLEEP DISORDER
     Route: 048
     Dates: start: 20050101
  8. MONOPRIL [Concomitant]
     Indication: HYPERTENSION
     Route: 048
  9. PLAVIX [Concomitant]
     Indication: PROPHYLAXIS
     Route: 048
     Dates: start: 20010101
  10. SINGULAIR [Concomitant]
     Indication: EMPHYSEMA
     Route: 048
     Dates: start: 20020101
  11. ASPIRIN [Concomitant]
     Indication: PROPHYLAXIS
     Dates: start: 19820101
  12. ZETIA [Concomitant]
     Indication: HYPERCHOLESTEROLAEMIA
     Dates: start: 20030101
  13. NIASPAN [Concomitant]
     Indication: HYPERCHOLESTEROLAEMIA
     Dates: start: 20000101
  14. COMPAZINE [Concomitant]
     Indication: NAUSEA
     Route: 030
     Dates: start: 20050511
  15. COMPAZINE [Concomitant]
     Route: 048
     Dates: start: 20050511
  16. COMPAZINE [Concomitant]
     Route: 054
     Dates: start: 20050511

REACTIONS (1)
  - CHEST PAIN [None]
